FAERS Safety Report 14451682 (Version 1)
Quarter: 2018Q1

REPORT INFORMATION
  Report Type: Spontaneous
  Country: US (occurrence: US)
  Receive Date: 20180129
  Receipt Date: 20180129
  Transmission Date: 20180509
  Serious: No
  Sender: FDA-Public Use
  Company Number: US-ABBVIE-17K-163-2138697-00

PATIENT
  Age: 63 Year
  Sex: Male

DRUGS (3)
  1. ISOSORBIDE. [Suspect]
     Active Substance: ISOSORBIDE
     Indication: PRODUCT USED FOR UNKNOWN INDICATION
     Route: 065
  2. AMLODIPINE [Suspect]
     Active Substance: AMLODIPINE BESYLATE
     Indication: PRODUCT USED FOR UNKNOWN INDICATION
     Route: 065
  3. HUMIRA [Suspect]
     Active Substance: ADALIMUMAB
     Indication: CROHN^S DISEASE
     Route: 058
     Dates: start: 201703

REACTIONS (6)
  - Abdominal pain [Not Recovered/Not Resolved]
  - Urinary retention [Not Recovered/Not Resolved]
  - Dizziness [Not Recovered/Not Resolved]
  - Palpitations [Not Recovered/Not Resolved]
  - Diarrhoea [Not Recovered/Not Resolved]
  - Injection site pain [Not Recovered/Not Resolved]

NARRATIVE: CASE EVENT DATE: 20171020
